FAERS Safety Report 5374949-X (Version None)
Quarter: 2007Q2

REPORT INFORMATION
  Report Type: 
  Country: None (occurrence: None)
  Receive Date: 20070627
  Receipt Date: 20070627
  Transmission Date: 20071010
  Serious: Yes (Life-Threatening, Hospitalization)
  Sender: FDA-Public Use
  Company Number: None

PATIENT
  Age: 81 Year
  Sex: Male

DRUGS (1)
  1. AMOXICILLIN [Suspect]
     Indication: HELICOBACTER INFECTION
     Dosage: 1000 MG BID PO
     Route: 048
     Dates: start: 20070430, end: 20070514

REACTIONS (4)
  - HYPERKALAEMIA [None]
  - NEPHRITIS [None]
  - NEPHRITIS INTERSTITIAL [None]
  - RASH [None]
